FAERS Safety Report 5122783-8 (Version None)
Quarter: 2006Q4

REPORT INFORMATION
  Report Type: 
  Country: None (occurrence: None)
  Receive Date: 20061005
  Receipt Date: 20061005
  Transmission Date: 20070319
  Serious: No
  Sender: FDA-Public Use
  Company Number: None

PATIENT
  Sex: Female
  Weight: 81 kg

DRUGS (8)
  1. REGLAN [Suspect]
     Indication: DYSPEPSIA
     Dosage: 5 MG TWICE A DAY PO
     Route: 048
     Dates: start: 20060331
  2. NIACIN [Suspect]
     Indication: HYPERLIPIDAEMIA
     Dosage: PO
     Route: 048
  3. ACTONEL [Concomitant]
  4. TUMS [Concomitant]
  5. LEVOTHROID [Concomitant]
  6. NIACIN [Concomitant]
  7. PROLOSEC OTC [Concomitant]
  8. ALEVE [Concomitant]

REACTIONS (1)
  - PRURITUS GENERALISED [None]
